FAERS Safety Report 7876554-X (Version None)
Quarter: 2011Q4

REPORT INFORMATION
  Report Type: 
  Country: None (occurrence: None)
  Receive Date: 20111031
  Receipt Date: 20111019
  Transmission Date: 20120403
  Serious: Yes (Disabling, Other)
  Sender: FDA-Public Use
  Company Number: US-ELI_LILLY_AND_COMPANY-US201110005412

PATIENT
  Sex: Male

DRUGS (9)
  1. HUMULIN N [Suspect]
     Indication: TYPE 2 DIABETES MELLITUS
     Dosage: 18 U, EACH MORNING
     Dates: start: 19810101
  2. HUMULIN N [Suspect]
     Dosage: 18 U, EACH MORNING
  3. HUMULIN N [Suspect]
     Dosage: 25 U, EACH MORNING
     Dates: start: 20111013
  4. HUMULIN N [Suspect]
     Dosage: 22 U, EACH MORNING
     Dates: start: 20111013
  5. HUMULIN R [Suspect]
     Indication: TYPE 2 DIABETES MELLITUS
     Dosage: 8 U, BID
     Dates: start: 19810101
  6. HUMULIN N [Suspect]
     Dosage: 25 U, EACH EVENING
     Dates: start: 20111013
  7. HUMULIN N [Suspect]
     Dosage: 22 U, EACH EVENING
     Dates: start: 19810101
  8. HUMULIN N [Suspect]
     Dosage: 22 U, EACH EVENING
  9. HUMULIN N [Suspect]
     Dosage: 22 U, EACH MORNING
     Dates: start: 20111013

REACTIONS (2)
  - HEADACHE [None]
  - BLINDNESS [None]
